FAERS Safety Report 7520428-0 (Version None)
Quarter: 2011Q2

REPORT INFORMATION
  Report Type: 
  Country: None (occurrence: None)
  Receive Date: 20110602
  Receipt Date: 20110525
  Transmission Date: 20111010
  Serious: Yes (Hospitalization)
  Sender: FDA-Public Use
  Company Number: US-GENENTECH-319440

PATIENT
  Sex: Male

DRUGS (3)
  1. ORAL STEROID [Concomitant]
     Indication: PRODUCT USED FOR UNKNOWN INDICATION
  2. XOLAIR [Suspect]
     Indication: ASTHMA
     Dosage: 300 MG, Q2W
     Dates: start: 20110515
  3. XOLAIR [Suspect]
     Indication: NASAL POLYPS

REACTIONS (1)
  - DEEP VEIN THROMBOSIS [None]
